FAERS Safety Report 17894738 (Version 1)
Quarter: 2020Q2

REPORT INFORMATION
  Report Type: Spontaneous
  Country: US (occurrence: US)
  Receive Date: 20200612
  Receipt Date: 20200612
  Transmission Date: 20200714
  Serious: Yes (Death)
  Sender: FDA-Public Use
  Company Number: None

PATIENT
  Age: 56 Year
  Sex: Male
  Weight: 50 kg

DRUGS (12)
  1. COTRIMOXAZOLE 400-80 [Concomitant]
     Dates: start: 20200529
  2. FAMOTIDINE 40 MG [Concomitant]
     Active Substance: FAMOTIDINE
     Dates: start: 20200529
  3. CEFEPIME 2 G [Concomitant]
     Dates: start: 20200601
  4. TACROLIMUS 1 MG [Concomitant]
     Active Substance: TACROLIMUS
     Dates: start: 20200529
  5. ASPIRIN EC 81 MG [Concomitant]
     Dates: start: 20200529
  6. VALGANCICLOVIR 450 MG [Concomitant]
     Dates: start: 20200529
  7. ISAVUCONAZOLE 372 MG [Concomitant]
     Dates: start: 20200606
  8. PREDNISONE 10 MG [Concomitant]
     Active Substance: PREDNISONE
     Dates: start: 20200531
  9. AZITHROMYCIN 250 MG [Concomitant]
     Active Substance: AZITHROMYCIN ANHYDROUS
     Dates: start: 20200601
  10. HEPARIN [Concomitant]
     Active Substance: HEPARIN SODIUM
     Dates: start: 20200529
  11. REMDESIVIR. [Suspect]
     Active Substance: REMDESIVIR
     Indication: COVID-19
     Route: 040
     Dates: start: 20200529, end: 20200602
  12. CARVEDILOL 3.125 MG [Concomitant]
     Active Substance: CARVEDILOL
     Dates: start: 20200606

REACTIONS (2)
  - Peripheral artery aneurysm [None]
  - Retroperitoneal haemorrhage [None]

NARRATIVE: CASE EVENT DATE: 20200609
